FAERS Safety Report 9937622 (Version 1)
Quarter: 2014Q1

REPORT INFORMATION
  Report Type: Spontaneous
  Country: GB (occurrence: GB)
  Receive Date: 20140303
  Receipt Date: 20140303
  Transmission Date: 20141002
  Serious: Yes (Other)
  Sender: FDA-Public Use
  Company Number: GB-RANBAXY-2014R1-78461

PATIENT
  Age: 18 Year
  Sex: Male

DRUGS (1)
  1. RISPERIDONE [Suspect]
     Indication: AUTISM SPECTRUM DISORDER
     Route: 048
     Dates: start: 20090408, end: 20110831

REACTIONS (5)
  - Gynaecomastia [Not Recovered/Not Resolved]
  - Hyperprolactinaemia [Recovered/Resolved]
  - Weight increased [Recovered/Resolved with Sequelae]
  - Skin striae [Recovered/Resolved with Sequelae]
  - Erectile dysfunction [Recovered/Resolved]
